FAERS Safety Report 8989850 (Version 2)
Quarter: 2013Q2

REPORT INFORMATION
  Report Type: Report from Study
  Country: CA (occurrence: CA)
  Receive Date: 20121228
  Receipt Date: 20130621
  Transmission Date: 20140414
  Serious: Yes (Hospitalization)
  Sender: FDA-Public Use
  Company Number: CA-JNJFOC-20121211519

PATIENT
  Sex: Male
  Weight: 98.3 kg

DRUGS (3)
  1. REMICADE [Suspect]
     Indication: CROHN^S DISEASE
     Route: 042
  2. REMICADE [Suspect]
     Indication: CROHN^S DISEASE
     Route: 042
     Dates: start: 20100617
  3. PREDNISONE [Concomitant]
     Route: 065

REACTIONS (2)
  - Nephrolithiasis [Recovered/Resolved]
  - Therapeutic response decreased [Unknown]
